FAERS Safety Report 8972472 (Version 3)
Quarter: 2013Q1

REPORT INFORMATION
  Report Type: Spontaneous
  Country: US (occurrence: US)
  Receive Date: 20121218
  Receipt Date: 20130123
  Transmission Date: 20140127
  Serious: Yes (Other)
  Sender: FDA-Public Use
  Company Number: US-PFIZER INC-2012320648

PATIENT
  Age: 28 Year
  Sex: 0

DRUGS (3)
  1. PRISTIQ [Suspect]
     Dosage: UNK
  2. LAMICTAL [Suspect]
     Dosage: UNK
  3. ADDERALL [Suspect]
     Dosage: UNK

REACTIONS (1)
  - Drug hypersensitivity [Unknown]
